FAERS Safety Report 11706159 (Version 3)
Quarter: 2016Q4

REPORT INFORMATION
  Report Type: Report from Study
  Country: AU (occurrence: AU)
  Receive Date: 20151106
  Receipt Date: 20161209
  Transmission Date: 20170206
  Serious: Yes (Hospitalization, Other)
  Sender: FDA-Public Use
  Company Number: AU-REGENERON PHARMACEUTICALS, INC.-2015-11655

PATIENT

DRUGS (2)
  1. EYLEA [Suspect]
     Active Substance: AFLIBERCEPT
     Dosage: 2 MG
     Route: 031
     Dates: start: 201609
  2. EYLEA [Suspect]
     Active Substance: AFLIBERCEPT
     Indication: NEOVASCULAR AGE-RELATED MACULAR DEGENERATION
     Dosage: 2 MG
     Route: 031
     Dates: start: 20150519

REACTIONS (12)
  - Fatigue [Recovering/Resolving]
  - Visual impairment [Unknown]
  - Abnormal sensation in eye [Recovered/Resolved]
  - Injection site pain [Recovered/Resolved]
  - Vulval cancer [Recovering/Resolving]
  - Malaise [Recovering/Resolving]
  - Lower respiratory tract infection [Unknown]
  - Cataract [Recovering/Resolving]
  - Intentional product use issue [Unknown]
  - Amnesia [Not Recovered/Not Resolved]
  - Eye pain [Not Recovered/Not Resolved]
  - Diabetes mellitus [Unknown]

NARRATIVE: CASE EVENT DATE: 20150519
